FAERS Safety Report 17111161 (Version 1)
Quarter: 2019Q4

REPORT INFORMATION
  Report Type: Spontaneous
  Country: US (occurrence: US)
  Receive Date: 20191203
  Receipt Date: 20191203
  Transmission Date: 20200122
  Serious: Yes (Hospitalization)
  Sender: FDA-Public Use
  Company Number: None

PATIENT
  Age: 68 Year
  Sex: Female

DRUGS (15)
  1. CAPECITABINE. [Suspect]
     Active Substance: CAPECITABINE
     Indication: BREAST CANCER FEMALE
     Route: 048
  2. PIQRAY [Concomitant]
     Active Substance: ALPELISIB
  3. IBRANCE [Concomitant]
     Active Substance: PALBOCICLIB
  4. METHIMAZOLE. [Concomitant]
     Active Substance: METHIMAZOLE
  5. ELIQUIS [Concomitant]
     Active Substance: APIXABAN
  6. SERTRALINE [Concomitant]
     Active Substance: SERTRALINE HYDROCHLORIDE
  7. AMLODIPINE [Concomitant]
     Active Substance: AMLODIPINE BESYLATE
  8. LORAZEPAM. [Concomitant]
     Active Substance: LORAZEPAM
  9. PANTOPRAZOLE [Concomitant]
     Active Substance: PANTOPRAZOLE
  10. FASLODEX [Concomitant]
     Active Substance: FULVESTRANT
  11. METOCLOPRAMIDE. [Concomitant]
     Active Substance: METOCLOPRAMIDE
  12. LETROZOLE. [Concomitant]
     Active Substance: LETROZOLE
  13. VITAMIN C [Concomitant]
     Active Substance: ASCORBIC ACID
  14. DEXAMETHASONE. [Concomitant]
     Active Substance: DEXAMETHASONE
  15. LOSARTAN. [Concomitant]
     Active Substance: LOSARTAN

REACTIONS (4)
  - Infection [None]
  - Chills [None]
  - Pyrexia [None]
  - Therapy cessation [None]
